FAERS Safety Report 13586490 (Version 1)
Quarter: 2017Q2

REPORT INFORMATION
  Report Type: Spontaneous
  Country: US (occurrence: US)
  Receive Date: 20170526
  Receipt Date: 20170526
  Transmission Date: 20170830
  Serious: Yes (Other)
  Sender: FDA-Public Use
  Company Number: US-LPDUSPRD-20170693

PATIENT
  Age: 27 Year
  Sex: Female

DRUGS (1)
  1. OLANZAPINE FOR INJECTION (0517-0955-01) [Suspect]
     Active Substance: OLANZAPINE
     Dosage: 10 MG
     Route: 030

REACTIONS (2)
  - Respiratory depression [Unknown]
  - Endotracheal intubation [Unknown]
